FAERS Safety Report 24185275 (Version 1)
Quarter: 2024Q3

REPORT INFORMATION
  Report Type: Spontaneous
  Country: US (occurrence: US)
  Receive Date: 20240807
  Receipt Date: 20240807
  Transmission Date: 20241017
  Serious: No
  Sender: GLENMARK
  Company Number: US-GLENMARK PHARMACEUTICALS-2024GMK091885

PATIENT

DRUGS (1)
  1. RYALTRIS [Suspect]
     Active Substance: MOMETASONE FUROATE MONOHYDRATE\OLOPATADINE HYDROCHLORIDE
     Indication: Rhinitis allergic
     Dosage: BID (INSTILL 2 SPRAYS IN EACH NOSTRIL TWICE DAILY)
     Route: 045
     Dates: start: 20231017, end: 20240624

REACTIONS (3)
  - Rhinitis allergic [Unknown]
  - Condition aggravated [Unknown]
  - Drug ineffective [Unknown]
